FAERS Safety Report 9282841 (Version 1)
Quarter: 2013Q2

REPORT INFORMATION
  Report Type: Spontaneous
  Country: US (occurrence: US)
  Receive Date: 20130510
  Receipt Date: 20130510
  Transmission Date: 20140414
  Serious: Yes (Hospitalization, Other)
  Sender: FDA-Public Use
  Company Number: US-ROCHE-1221229

PATIENT
  Sex: Male

DRUGS (2)
  1. RITUXAN [Suspect]
     Indication: NON-HODGKIN^S LYMPHOMA
     Route: 065
     Dates: start: 2012
  2. HEPARIN [Concomitant]

REACTIONS (4)
  - Vascular occlusion [Not Recovered/Not Resolved]
  - Skin ulcer [Recovered/Resolved]
  - White blood cell count decreased [Unknown]
  - Haemorrhage [Unknown]
